FAERS Safety Report 16051733 (Version 2)
Quarter: 2019Q2

REPORT INFORMATION
  Report Type: Spontaneous
  Country: US (occurrence: US)
  Receive Date: 20190308
  Receipt Date: 20190408
  Transmission Date: 20190711
  Serious: No
  Sender: FDA-Public Use
  Company Number: US-MERZ NORTH AMERICA, INC.-19MRZ-00061

PATIENT
  Sex: Female

DRUGS (1)
  1. ASCLERA [Suspect]
     Active Substance: POLIDOCANOL
     Indication: SPIDER VEIN
     Dosage: 6CC
     Route: 042

REACTIONS (3)
  - Tenderness [Recovering/Resolving]
  - Skin necrosis [Recovering/Resolving]
  - Ulcer [Recovering/Resolving]
